FAERS Safety Report 9854181 (Version 2)
Quarter: 2014Q1

REPORT INFORMATION
  Report Type: Spontaneous
  Country: US (occurrence: US)
  Receive Date: 20140130
  Receipt Date: 20140130
  Transmission Date: 20141002
  Serious: Yes (Other)
  Sender: FDA-Public Use
  Company Number: US-ROCHE-GNE278456

PATIENT
  Age: 13 Year
  Sex: Female
  Weight: 54.48 kg

DRUGS (7)
  1. XOLAIR [Suspect]
     Indication: ASTHMA
     Dosage: 150 MG, Q4W
     Route: 065
     Dates: start: 20080930, end: 20090220
  2. ADVAIR [Concomitant]
     Indication: ASTHMA
     Dosage: 1 PUFF, QD, DOSE 1 PUFF, DAILY DOSE1 PUFF
     Route: 055
     Dates: start: 2006
  3. QVAR [Concomitant]
     Indication: ASTHMA
     Dosage: 80 MCG, QPM
     Route: 055
     Dates: start: 2006
  4. SINGULAIR [Concomitant]
     Indication: ASTHMA
     Dosage: 10 MG, QD
     Route: 048
     Dates: start: 2006
  5. ALBUTEROL [Concomitant]
     Indication: ASTHMA
     Dosage: 2 PUFF, PRN, DOSE 2 PUFF
     Route: 065
     Dates: start: 200410
  6. XOPENEX HFA [Concomitant]
     Indication: ASTHMA
     Dosage: 1 PUFF, BID, DOSE 1 PUFF, DAILY DOSE 2 PUFF
     Route: 055
     Dates: start: 2006
  7. ASMANEX [Concomitant]
     Indication: ASTHMA
     Dosage: 220 MCG, QAM
     Route: 055
     Dates: start: 2006

REACTIONS (2)
  - Dyspnoea [Recovered/Resolved]
  - Flushing [Unknown]
